FAERS Safety Report 4991118-3 (Version None)
Quarter: 2006Q1

REPORT INFORMATION
  Report Type: 
  Country: None (occurrence: None)
  Receive Date: 20060314
  Receipt Date: 20060206
  Transmission Date: 20060701
  Serious: No
  Sender: FDA-Public Use
  Company Number: 2006-00261

PATIENT
  Age: 85 Year
  Sex: Female

DRUGS (8)
  1. VELCADE [Suspect]
     Indication: MULTIPLE MYELOMA
     Dates: start: 20060101
  2. ASPIRIN [Concomitant]
  3. ISOSORBIDE MONONITRATE [Concomitant]
  4. TOPROL-XL [Concomitant]
  5. PROCARDIA XL [Concomitant]
  6. DIOVAN [Concomitant]
  7. FUROSEMIDE [Concomitant]
  8. DEXAMETHASONE TAB [Concomitant]

REACTIONS (1)
  - ALOPECIA [None]
